FAERS Safety Report 11628820 (Version 1)
Quarter: 2015Q4

REPORT INFORMATION
  Report Type: Spontaneous
  Country: US (occurrence: None)
  Receive Date: 20151013
  Receipt Date: 20151013
  Transmission Date: 20160304
  Serious: No
  Sender: FDA-Public Use
  Company Number: None

PATIENT
  Sex: Female

DRUGS (26)
  1. ASPIRIN. [Concomitant]
     Active Substance: ASPIRIN
  2. DEXAMETHASON [Concomitant]
     Active Substance: DEXAMETHASONE
  3. CELEXA [Concomitant]
     Active Substance: CITALOPRAM HYDROBROMIDE
  4. NITROFURANTIN [Concomitant]
     Active Substance: NITROFURANTOIN
  5. CALCIUM PLUS D [Concomitant]
     Active Substance: CALCIUM\VITAMIN D
  6. VOTRIENT [Suspect]
     Active Substance: PAZOPANIB HYDROCHLORIDE
     Indication: RENAL CANCER
     Dosage: 200MG 3 PO QOD ALT 4 PO PO
     Route: 048
     Dates: start: 20130731
  7. VITAMIN D [Concomitant]
     Active Substance: CHOLECALCIFEROL
  8. RANITIDINE [Concomitant]
     Active Substance: RANITIDINE\RANITIDINE HYDROCHLORIDE
  9. PRAVACHOL [Concomitant]
     Active Substance: PRAVASTATIN SODIUM
  10. MEHTYPRED [Concomitant]
  11. MEDROL [Concomitant]
     Active Substance: METHYLPREDNISOLONE
  12. LEVOTHRYROXINE [Concomitant]
  13. VVICODIN [Concomitant]
  14. PRAVASTAIN [Concomitant]
  15. ETOPROLOL [Concomitant]
  16. CITALOPRAM [Concomitant]
     Active Substance: CITALOPRAM HYDROBROMIDE
  17. OMEPRAZOLE. [Concomitant]
     Active Substance: OMEPRAZOLE
  18. ZOFRAN [Concomitant]
     Active Substance: ONDANSETRON HYDROCHLORIDE
  19. ACTOS [Concomitant]
     Active Substance: PIOGLITAZONE HYDROCHLORIDE
  20. ZANTAC [Concomitant]
     Active Substance: RANITIDINE HYDROCHLORIDE
  21. LORAZEPAM. [Concomitant]
     Active Substance: LORAZEPAM
  22. CEPHALEXIN. [Concomitant]
     Active Substance: CEPHALEXIN
  23. AMBIEN [Concomitant]
     Active Substance: ZOLPIDEM TARTRATE
  24. LOPERAMIDE [Concomitant]
     Active Substance: LOPERAMIDE
  25. CENTRUM [Concomitant]
     Active Substance: VITAMINS
  26. ARIMIDEX [Concomitant]
     Active Substance: ANASTROZOLE

REACTIONS (7)
  - Erythema [None]
  - Headache [None]
  - Contusion [None]
  - Pigmentation disorder [None]
  - Nausea [None]
  - Fatigue [None]
  - Toothache [None]
